FAERS Safety Report 5485700-7 (Version None)
Quarter: 2007Q4

REPORT INFORMATION
  Report Type: 
  Country: None (occurrence: None)
  Receive Date: 20071011
  Receipt Date: 20071011
  Transmission Date: 20080405
  Serious: Yes (Life-Threatening)
  Sender: FDA-Public Use
  Company Number: None

PATIENT
  Age: 64 Year
  Sex: Female
  Weight: 73.4827 kg

DRUGS (2)
  1. BYETTA [Suspect]
     Indication: TYPE 2 DIABETES MELLITUS
     Dosage: 5MCG TWICE A DAY SQ
     Route: 058
     Dates: start: 20070820, end: 20070831
  2. BYETTA [Suspect]
     Indication: TYPE 2 DIABETES MELLITUS
     Dosage: 5MCG TWICE A DAY SQ
     Route: 058
     Dates: start: 20071008, end: 20071008

REACTIONS (11)
  - DIZZINESS [None]
  - ERYTHEMA [None]
  - FEELING JITTERY [None]
  - INJECTION SITE IRRITATION [None]
  - NAUSEA [None]
  - OEDEMA PERIPHERAL [None]
  - PALPITATIONS [None]
  - PHARYNGEAL OEDEMA [None]
  - RASH GENERALISED [None]
  - RASH PRURITIC [None]
  - VISUAL DISTURBANCE [None]
